FAERS Safety Report 13227756 (Version 3)
Quarter: 2017Q2

REPORT INFORMATION
  Report Type: Report from Study
  Country: None (occurrence: US)
  Receive Date: 20170213
  Receipt Date: 20170421
  Transmission Date: 20170830
  Serious: Yes (Other)
  Sender: FDA-Public Use
  Company Number: US-ABBVIE-17K-163-1845020-00

PATIENT
  Age: 31 Year
  Sex: Female
  Weight: 68.1 kg

DRUGS (7)
  1. PRENATAL VITAMINS [Concomitant]
     Active Substance: VITAMINS
     Indication: PRODUCT USED FOR UNKNOWN INDICATION
  2. HUMIRA [Suspect]
     Active Substance: ADALIMUMAB
     Dosage: MAINTENANCE DOSE DAY 29
     Route: 058
     Dates: start: 2017
  3. HUMIRA [Suspect]
     Active Substance: ADALIMUMAB
     Dosage: DAY 1
     Route: 058
     Dates: start: 201701, end: 201701
  4. HUMIRA [Suspect]
     Active Substance: ADALIMUMAB
     Indication: CROHN^S DISEASE
     Route: 058
     Dates: start: 2011, end: 2016
  5. HUMIRA [Suspect]
     Active Substance: ADALIMUMAB
     Dosage: DAY 15
     Route: 058
     Dates: start: 2017, end: 2017
  6. IRON [Suspect]
     Active Substance: IRON
     Indication: PRODUCT USED FOR UNKNOWN INDICATION
     Route: 042
  7. LOVENOX [Concomitant]
     Active Substance: ENOXAPARIN SODIUM
     Indication: CARDIOLIPIN ANTIBODY

REACTIONS (21)
  - Insomnia [Unknown]
  - Suppressed lactation [Unknown]
  - Infection susceptibility increased [Unknown]
  - Contusion [Unknown]
  - Feeling cold [Unknown]
  - Decreased appetite [Recovered/Resolved]
  - Dyspepsia [Recovered/Resolved]
  - Abdominal pain upper [Unknown]
  - Rectal haemorrhage [Unknown]
  - Pruritus [Recovered/Resolved]
  - Diarrhoea [Unknown]
  - Exposure during pregnancy [Unknown]
  - Diarrhoea haemorrhagic [Recovered/Resolved]
  - Nausea [Unknown]
  - Vomiting [Recovered/Resolved]
  - Live birth [Unknown]
  - Depression [Unknown]
  - Crohn^s disease [Unknown]
  - Constipation [Recovered/Resolved]
  - Anaemia of pregnancy [Unknown]
  - Anxiety [Unknown]

NARRATIVE: CASE EVENT DATE: 2016
